FAERS Safety Report 18606861 (Version 2)
Quarter: 2020Q4

REPORT INFORMATION
  Report Type: Report from Study
  Country: US (occurrence: US)
  Receive Date: 20201211
  Receipt Date: 20201216
  Transmission Date: 20210114
  Serious: Yes (Hospitalization)
  Sender: FDA-Public Use
  Company Number: US-CELGENEUS-USA-20201202305

PATIENT
  Age: 57 Year
  Sex: Female
  Weight: 60.1 kg

DRUGS (9)
  1. OXYCODONE [Concomitant]
     Active Substance: OXYCODONE
     Indication: PAIN
     Route: 048
     Dates: start: 20201130
  2. NORMAL SALINE [Concomitant]
     Active Substance: SODIUM CHLORIDE
     Indication: HYPERCALCAEMIA
     Route: 041
     Dates: start: 20201203, end: 20201203
  3. GABAPENTIN. [Concomitant]
     Active Substance: GABAPENTIN
     Indication: PAIN
     Route: 048
     Dates: start: 20201104
  4. HYDROCODONE BITARTRATE AND ACETAMINOPHEN [Concomitant]
     Active Substance: ACETAMINOPHEN\HYDROCODONE BITARTRATE
     Indication: PAIN
     Dosage: 5-325 MILLIGRAM
     Route: 048
     Dates: start: 20201009, end: 20201130
  5. MS CONTIN [Concomitant]
     Active Substance: MORPHINE SULFATE
     Indication: PAIN
     Dosage: 60 MILLIGRAM
     Route: 048
     Dates: start: 20201130
  6. NORMAL SALINE [Concomitant]
     Active Substance: SODIUM CHLORIDE
     Route: 041
     Dates: start: 20201204, end: 20201204
  7. VERAPAMIL [Concomitant]
     Active Substance: VERAPAMIL HYDROCHLORIDE
     Indication: ATRIAL TACHYCARDIA
     Dosage: 180 MILLIGRAM
     Route: 048
     Dates: start: 20191107
  8. XGEVA [Concomitant]
     Active Substance: DENOSUMAB
     Indication: HYPERCALCAEMIA
     Route: 058
     Dates: start: 20201203, end: 20201203
  9. ABRAXANE [Suspect]
     Active Substance: PACLITAXEL
     Indication: SMALL CELL LUNG CANCER RECURRENT
     Route: 065
     Dates: start: 20201203

REACTIONS (1)
  - Superior vena cava syndrome [Recovered/Resolved with Sequelae]

NARRATIVE: CASE EVENT DATE: 20201205
